FAERS Safety Report 18264661 (Version 2)
Quarter: 2021Q1

REPORT INFORMATION
  Report Type: Spontaneous
  Country: US (occurrence: US)
  Receive Date: 20200914
  Receipt Date: 20210311
  Transmission Date: 20210419
  Serious: No
  Sender: FDA-Public Use
  Company Number: US-PFIZER INC-2020353664

PATIENT
  Age: 45 Year
  Sex: Female

DRUGS (1)
  1. IBRANCE [Suspect]
     Active Substance: PALBOCICLIB
     Indication: BREAST CANCER FEMALE
     Dosage: 125 MG, CYCLIC [125 MG QD X 21 DAYS Q 28 DAYS) QD X 21D THEN 7D OFF]
     Route: 048
     Dates: start: 20200204

REACTIONS (2)
  - Nausea [Unknown]
  - Alopecia [Unknown]
